FAERS Safety Report 19010721 (Version 1)
Quarter: 2021Q1

REPORT INFORMATION
  Report Type: Spontaneous
  Country: CN (occurrence: CN)
  Receive Date: 20210315
  Receipt Date: 20210315
  Transmission Date: 20210420
  Serious: Yes (Hospitalization)
  Sender: FDA-Public Use
  Company Number: CN-BAXTER-2021BAX004629

PATIENT
  Age: 4 Year
  Sex: Male
  Weight: 17.5 kg

DRUGS (14)
  1. 0.9% SODIUM CHLORIDE INJECTION [Suspect]
     Active Substance: SODIUM CHLORIDE
     Indication: MEDICATION DILUTION
     Dosage: CYCLOPHOSPHAMIDE 170 MG + 0.9% SODIUM CHLORIDE INJECTION 40ML (DAY1?5)
     Route: 041
     Dates: start: 20210210, end: 20210214
  2. HYCAMTIN [Suspect]
     Active Substance: TOPOTECAN HYDROCHLORIDE
     Dosage: DOSE RE?INTRODUCED, TOPOTECAN POWDER FOR INJECTION + 0.9% SODIUM CHLORIDE INJECTION
     Route: 041
  3. 0.9% SODIUM CHLORIDE INJECTION [Suspect]
     Active Substance: SODIUM CHLORIDE
     Dosage: TOPOTECAN POWDER FOR INJECTION 0.5 MG + 0.9% SODIUM CHLORIDE INJECTION 20 ML (DAY1?5)
     Route: 041
     Dates: start: 20210210, end: 20210214
  4. OUBEI [Suspect]
     Active Substance: ONDANSETRON HYDROCHLORIDE
     Indication: PROPHYLAXIS
     Dosage: ONDANSETRON 3.4 MG + 0.9% SODIUM CHLORIDE 25ML,  30 MINUTES BEFORE DAILY CHEMOTHERAPY
     Route: 041
     Dates: start: 20210210, end: 20210214
  5. BANGQI (MESNA) [Suspect]
     Active Substance: MESNA
     Dosage: DOSE RE?INTRODUCED
     Route: 042
  6. ENDOXAN [Suspect]
     Active Substance: CYCLOPHOSPHAMIDE
     Indication: NEUROBLASTOMA RECURRENT
     Dosage: CYCLOPHOSPHAMIDE 170 MG + 0.9% SODIUM CHLORIDE INJECTION 40ML (DAY1?5)
     Route: 041
     Dates: start: 20210210, end: 20210214
  7. ENDOXAN [Suspect]
     Active Substance: CYCLOPHOSPHAMIDE
     Dosage: DOSE RE?INTRODUCED, CYCLOPHOSPHAMIDE + 0.9% SODIUM CHLORIDE INJECTION
     Route: 041
  8. 0.9% SODIUM CHLORIDE INJECTION [Suspect]
     Active Substance: SODIUM CHLORIDE
     Dosage: ONDANSETRON INJECTION 3.4 MG + 0.9% SODIUM CHLORIDE INJECTION 25ML
     Route: 041
     Dates: start: 20210210, end: 20210214
  9. 0.9% SODIUM CHLORIDE INJECTION [Suspect]
     Active Substance: SODIUM CHLORIDE
     Dosage: DOSE RE?INTRODUCED, ONDANSETRON INJECTION + 0.9% SODIUM CHLORIDE INJECTION
     Route: 041
  10. 0.9% SODIUM CHLORIDE INJECTION [Suspect]
     Active Substance: SODIUM CHLORIDE
     Dosage: DOSE RE?INTRODUCED, CYCLOPHOSPHAMIDE POWDER FOR INJECTION + 0.9% SODIUM CHLORIDE INJECTION
     Route: 041
  11. OUBEI [Suspect]
     Active Substance: ONDANSETRON HYDROCHLORIDE
     Dosage: DOSE RE?INTRODUCED, ONDANSETRON INJECTION  + 0.9% SODIUM CHLORIDE INJECTION
     Route: 041
  12. BANGQI (MESNA) [Suspect]
     Active Substance: MESNA
     Indication: PROPHYLAXIS
     Dosage: BEFORE AND AFTER CYCLOPHOSPHAMIDE USE
     Route: 042
     Dates: start: 20210210, end: 20210210
  13. 0.9% SODIUM CHLORIDE INJECTION [Suspect]
     Active Substance: SODIUM CHLORIDE
     Dosage: DOSE RE?INTRODUCED, TOPOTECAN POWDER FOR INJECTION + 0.9% SODIUM CHLORIDE INJECTION
     Route: 041
  14. HYCAMTIN [Suspect]
     Active Substance: TOPOTECAN HYDROCHLORIDE
     Indication: NEUROBLASTOMA RECURRENT
     Dosage: TOPOTECAN POWDER FOR INJECTION 0.5 MG + 0.9% SODIUM CHLORIDE INJECTION 20 ML, (DAY1?5)
     Route: 041
     Dates: start: 20210210, end: 20210214

REACTIONS (1)
  - Pancytopenia [Recovering/Resolving]

NARRATIVE: CASE EVENT DATE: 20210222
